FAERS Safety Report 8824648 (Version 1)
Quarter: 2012Q4

REPORT INFORMATION
  Report Type: 
  Country: US (occurrence: US)
  Receive Date: 20121004
  Receipt Date: 20121004
  Transmission Date: 20130627
  Serious: No
  Sender: FDA-Public Use
  Company Number: PHEH2012US019131

PATIENT
  Age: 73 Year
  Sex: Female

DRUGS (5)
  1. TASIGNA [Suspect]
     Indication: CHRONIC MYELOID LEUKAEMIA
     Dosage: 400 mg, BID
     Route: 048
     Dates: start: 20120312
  2. AUGMENTIN [Suspect]
     Indication: SINUSITIS
  3. ZYRTEC [Concomitant]
     Indication: HYPERSENSITIVITY
  4. ZOLOFT [Concomitant]
     Dosage: 100 mg, daily
  5. MULTIPLE VITAMINS [Concomitant]

REACTIONS (2)
  - Full blood count abnormal [Recovered/Resolved]
  - Platelet count decreased [Recovered/Resolved]
